FAERS Safety Report 9771804 (Version 1)
Quarter: 2013Q4

REPORT INFORMATION
  Report Type: Spontaneous
  Country: CN (occurrence: CN)
  Receive Date: 20131219
  Receipt Date: 20131219
  Transmission Date: 20140711
  Serious: Yes (Hospitalization)
  Sender: FDA-Public Use
  Company Number: CN-ASTRAZENECA-2013SE90968

PATIENT
  Sex: Male

DRUGS (4)
  1. BRILINTA [Suspect]
     Indication: THROMBOSIS IN DEVICE
     Route: 048
     Dates: start: 201312
  2. BRILINTA [Suspect]
     Indication: ACUTE CORONARY SYNDROME
     Route: 048
     Dates: start: 201312
  3. BRILINTA [Suspect]
     Indication: STENT PLACEMENT
     Route: 048
     Dates: start: 201312
  4. PLAVIX [Concomitant]

REACTIONS (3)
  - Coma [Unknown]
  - Fall [Unknown]
  - Cerebral haemorrhage [Unknown]
